FAERS Safety Report 6158800-6 (Version None)
Quarter: 2009Q2

REPORT INFORMATION
  Report Type: 
  Country: None (occurrence: None)
  Receive Date: 20090417
  Receipt Date: 20090410
  Transmission Date: 20091009
  Serious: Yes (Hospitalization)
  Sender: FDA-Public Use
  Company Number: JP-JNJFOC-20090205202

PATIENT
  Sex: Female
  Weight: 67 kg

DRUGS (15)
  1. RISPERDAL [Suspect]
     Indication: SCHIZOPHRENIA
     Route: 048
  2. VEGETAMIN B [Suspect]
     Indication: DRUG USE FOR UNKNOWN INDICATION
     Dosage: 1 DF
     Route: 048
  3. ANTIPSYCHOTICS [Suspect]
     Indication: DRUG USE FOR UNKNOWN INDICATION
     Route: 065
  4. CEFCAPENE PIVOXIL HYDROCHLORIDE [Suspect]
     Indication: OROPHARYNGEAL PAIN
     Route: 065
  5. CEFCAPENE PIVOXIL HYDROCHLORIDE [Suspect]
     Indication: RHINORRHOEA
     Route: 065
  6. CEFCAPENE PIVOXIL HYDROCHLORIDE [Suspect]
     Indication: PYREXIA
     Route: 065
  7. SALICYLAMIDE [Suspect]
     Indication: DRUG USE FOR UNKNOWN INDICATION
     Route: 065
  8. LYSOZYME HYDROCHLORIDE [Suspect]
     Indication: DRUG USE FOR UNKNOWN INDICATION
     Route: 065
  9. ANTIBIOTICS-RESISTANT LACTIC ACID BACTERIAE [Suspect]
     Indication: DRUG USE FOR UNKNOWN INDICATION
     Route: 065
  10. LEVOFLOXACIN HYDRATE [Suspect]
     Indication: DRUG USE FOR UNKNOWN INDICATION
     Route: 065
  11. LIMAS [Concomitant]
     Route: 048
  12. ABILIFY [Concomitant]
     Route: 048
  13. SEROQUEL [Concomitant]
     Route: 048
  14. HIRNAMIN [Concomitant]
     Route: 048
  15. ROHYPNOL [Concomitant]
     Route: 048

REACTIONS (2)
  - DRUG RASH WITH EOSINOPHILIA AND SYSTEMIC SYMPTOMS [None]
  - HEPATIC FUNCTION ABNORMAL [None]
